FAERS Safety Report 25963861 (Version 1)
Quarter: 2025Q4

REPORT INFORMATION
  Report Type: Spontaneous
  Country: US (occurrence: US)
  Receive Date: 20251027
  Receipt Date: 20251027
  Transmission Date: 20260117
  Serious: Yes (Hospitalization)
  Sender: AMGEN
  Company Number: US-AMGEN-USASP2025208650

PATIENT
  Age: 62 Year
  Sex: Female

DRUGS (1)
  1. REPATHA [Suspect]
     Active Substance: EVOLOCUMAB
     Indication: Blood cholesterol abnormal
     Dosage: 140 MILLIGRAM PER MILLILITRE, Q2WK
     Route: 058
     Dates: start: 20250209

REACTIONS (7)
  - Nephrolithiasis [Unknown]
  - Influenza [Unknown]
  - Muscle spasms [Unknown]
  - Gait disturbance [Unknown]
  - Device difficult to use [Unknown]
  - Drug dose omission by device [Unknown]
  - Wrong technique in product usage process [Unknown]

NARRATIVE: CASE EVENT DATE: 20251019
